FAERS Safety Report 25146380 (Version 1)
Quarter: 2025Q2

REPORT INFORMATION
  Report Type: Spontaneous
  Country: US (occurrence: None)
  Receive Date: 20250331
  Receipt Date: 20250331
  Transmission Date: 20250717
  Serious: No
  Sender: FDA-CTU
  Company Number: None

PATIENT

DRUGS (1)
  1. AMANTADINE [Suspect]
     Active Substance: AMANTADINE

REACTIONS (5)
  - Drug ineffective [None]
  - Product use issue [None]
  - Withdrawal syndrome [None]
  - Feeling drunk [None]
  - Gait disturbance [None]
